FAERS Safety Report 6523282-9 (Version None)
Quarter: 2009Q4

REPORT INFORMATION
  Report Type: 
  Country: None (occurrence: None)
  Receive Date: 20091231
  Receipt Date: 20091228
  Transmission Date: 20100525
  Serious: Yes (Other)
  Sender: FDA-Public Use
  Company Number: JP-ASTRAZENECA-2009SE02871

PATIENT
  Age: 6126 Day
  Sex: Female
  Weight: 54 kg

DRUGS (5)
  1. SEROQUEL [Suspect]
     Indication: ADJUSTMENT DISORDER
     Route: 048
     Dates: start: 20080923, end: 20080924
  2. SEROQUEL [Suspect]
     Route: 048
     Dates: start: 20081015, end: 20081016
  3. LITHIUM CARBONATE [Concomitant]
     Indication: ADJUSTMENT DISORDER
     Route: 048
  4. MAGMITT [Concomitant]
     Indication: CONSTIPATION
     Dates: start: 20080829
  5. RISUMIC [Concomitant]
     Indication: HYPOTENSION
     Dates: end: 20081104

REACTIONS (1)
  - VENTRICULAR EXTRASYSTOLES [None]
